FAERS Safety Report 4799725-8 (Version None)
Quarter: 2005Q4

REPORT INFORMATION
  Report Type: 
  Country: None (occurrence: None)
  Receive Date: 20051011
  Receipt Date: 20051011
  Transmission Date: 20060501
  Serious: Yes (Hospitalization)
  Sender: FDA-Public Use
  Company Number: None

PATIENT
  Sex: Male
  Weight: 90.7194 kg

DRUGS (2)
  1. DIOVAN [Suspect]
     Indication: BICUSPID AORTIC VALVE
     Dosage: ONE QD
     Dates: start: 20041101, end: 20050801
  2. PROPECIA [Concomitant]

REACTIONS (1)
  - GRAND MAL CONVULSION [None]
